FAERS Safety Report 4543204-X (Version None)
Quarter: 2004Q4

REPORT INFORMATION
  Report Type: 
  Country: None (occurrence: None)
  Receive Date: 20041230
  Receipt Date: 20041215
  Transmission Date: 20050328
  Serious: Yes (Other)
  Sender: FDA-Public Use
  Company Number: DSA_25521_2004

PATIENT
  Age: 86 Year
  Sex: Female

DRUGS (3)
  1. DILTIAZEM [Suspect]
     Dosage: 300 MG Q DAY
     Dates: start: 20041106, end: 20040101
  2. CARDIZEM [Suspect]
     Dosage: DF
  3. CARDIZEM [Suspect]
     Dosage: DF
     Dates: start: 20040101

REACTIONS (4)
  - EYE PAIN [None]
  - HEADACHE [None]
  - STOMACH DISCOMFORT [None]
  - THINKING ABNORMAL [None]
